FAERS Safety Report 9580243 (Version 1)
Quarter: 2013Q3

REPORT INFORMATION
  Report Type: Spontaneous
  Country: US (occurrence: None)
  Receive Date: 20130916
  Receipt Date: 20130916
  Transmission Date: 20140515
  Serious: Yes (Other)
  Sender: FDA-Public Use
  Company Number: JPI-P-032336

PATIENT
  Age: 62 Year
  Sex: Female
  Weight: 96.16 kg

DRUGS (5)
  1. XYREM (500 MILLIGRAM/MILLILITERS, SOLUTION) (SODIUM OXYBATE) [Suspect]
     Indication: NARCOLEPSY
     Route: 048
     Dates: start: 20130506, end: 201305
  2. XYREM (500 MILLIGRAM/MILLILITERS, SOLUTION) (SODIUM OXYBATE) [Suspect]
     Indication: SOMNOLENCE
     Route: 048
     Dates: start: 20130506, end: 201305
  3. VENLAFAXIN [Suspect]
     Indication: DEPRESSION
     Route: 048
     Dates: start: 201305
  4. VENLAFAXIN [Suspect]
     Indication: ANXIETY
     Route: 048
     Dates: start: 201305
  5. ASACOL HD DR [Concomitant]

REACTIONS (3)
  - Depression [None]
  - Headache [None]
  - Condition aggravated [None]
